FAERS Safety Report 22619268 (Version 2)
Quarter: 2024Q1

REPORT INFORMATION
  Report Type: Report from Study
  Country: CA (occurrence: CA)
  Receive Date: 20230620
  Receipt Date: 20240208
  Transmission Date: 20240409
  Serious: Yes (Other)
  Sender: FDA-Public Use
  Company Number: CA-TAKEDA-2023TUS059815

PATIENT
  Sex: Female

DRUGS (8)
  1. VEDOLIZUMAB [Suspect]
     Active Substance: VEDOLIZUMAB
     Indication: Colitis ulcerative
     Dosage: 300 MILLIGRAM
     Route: 042
     Dates: start: 20201105
  2. VEDOLIZUMAB [Suspect]
     Active Substance: VEDOLIZUMAB
     Dosage: 300 MILLIGRAM
     Route: 042
  3. PREDNISONE [Concomitant]
     Active Substance: PREDNISONE
     Indication: Condition aggravated
     Dosage: UNK
     Dates: start: 2014
  4. PREDNISONE [Concomitant]
     Active Substance: PREDNISONE
     Dosage: UNK
     Route: 048
     Dates: start: 202004
  5. PREDNISONE [Concomitant]
     Active Substance: PREDNISONE
     Dosage: UNK
  6. ASACOL [Concomitant]
     Active Substance: MESALAMINE
     Indication: Condition aggravated
     Dosage: UNK
     Dates: start: 2014, end: 2017
  7. ASACOL [Concomitant]
     Active Substance: MESALAMINE
     Dosage: UNK
     Dates: start: 2020
  8. MESALAMINE [Concomitant]
     Active Substance: MESALAMINE
     Dosage: UNK UNK, QD
     Route: 048
     Dates: start: 20221104

REACTIONS (1)
  - Oral lichen planus [Recovering/Resolving]
